FAERS Safety Report 11315843 (Version 1)
Quarter: 2015Q3

REPORT INFORMATION
  Report Type: Spontaneous
  Country: IT (occurrence: IT)
  Receive Date: 20150728
  Receipt Date: 20150728
  Transmission Date: 20151125
  Serious: Yes (Hospitalization)
  Sender: FDA-Public Use
  Company Number: IT-ACCORD-032396

PATIENT
  Age: 71 Year
  Sex: Male

DRUGS (8)
  1. FLUOROURACILE AHCL [Suspect]
     Active Substance: FLUOROURACIL
     Indication: PRODUCT USED FOR UNKNOWN INDICATION
     Route: 042
     Dates: start: 20150521, end: 20150625
  2. AZILECT [Concomitant]
     Active Substance: RASAGILINE MESYLATE
  3. CARDICOR [Suspect]
     Active Substance: BISOPROLOL
     Indication: PRODUCT USED FOR UNKNOWN INDICATION
     Dosage: 1.25 MG
     Route: 048
     Dates: start: 20150113, end: 20150625
  4. CISPLATIN SANDOZ [Suspect]
     Active Substance: CISPLATIN
     Indication: PRODUCT USED FOR UNKNOWN INDICATION
     Dosage: 1 MG/ML
     Route: 042
     Dates: start: 20150521, end: 20150625
  5. ONDANSETRON ACCORD [Suspect]
     Active Substance: ONDANSETRON
     Indication: PRODUCT USED FOR UNKNOWN INDICATION
     Route: 042
     Dates: start: 20150521, end: 20150625
  6. PANTORC [Concomitant]
     Active Substance: PANTOPRAZOLE SODIUM
  7. FOLIFILL [Concomitant]
     Dosage: STRENGTH: 5MG
  8. SINVACOR [Concomitant]
     Active Substance: SIMVASTATIN

REACTIONS (5)
  - Asthenia [Recovered/Resolved]
  - Nausea [Recovered/Resolved]
  - Dysphagia [Recovered/Resolved]
  - Bradycardia [Recovered/Resolved]
  - Oral discomfort [Recovered/Resolved]

NARRATIVE: CASE EVENT DATE: 20150625
